FAERS Safety Report 23816941 (Version 1)
Quarter: 2024Q2

REPORT INFORMATION
  Report Type: Report from Study
  Country: EG (occurrence: EG)
  Receive Date: 20240504
  Receipt Date: 20240504
  Transmission Date: 20240716
  Serious: Yes (Other)
  Sender: FDA-Public Use
  Company Number: EG-002147023-NVSC2024EG093747

PATIENT
  Sex: Female

DRUGS (1)
  1. COSENTYX [Suspect]
     Active Substance: SECUKINUMAB
     Indication: Ankylosing spondylitis
     Dosage: ONE PREFILLED PEN EVERY 2 WEEKS FOR 3 MONTH
     Route: 058
     Dates: start: 202403

REACTIONS (3)
  - Ankylosing spondylitis [Recovering/Resolving]
  - Dizziness [Recovered/Resolved]
  - Off label use [Unknown]
